FAERS Safety Report 8179517-2 (Version None)
Quarter: 2012Q1

REPORT INFORMATION
  Report Type: 
  Country: None (occurrence: None)
  Receive Date: 20120302
  Receipt Date: 20120227
  Transmission Date: 20120608
  Serious: Yes (Death)
  Sender: FDA-Public Use
  Company Number: CO-JNJFOC-20120108773

PATIENT
  Age: 93 Year
  Sex: Male

DRUGS (3)
  1. DURAGESIC-100 [Suspect]
     Indication: PROSTATE CANCER
     Route: 062
     Dates: start: 20110401
  2. PREGABALIN [Concomitant]
     Route: 065
     Dates: start: 20110401
  3. ACETAMINOPHEN [Concomitant]
     Route: 065

REACTIONS (1)
  - DISEASE PROGRESSION [None]
